FAERS Safety Report 5748250-6 (Version None)
Quarter: 2008Q2

REPORT INFORMATION
  Report Type: 
  Country: None (occurrence: None)
  Receive Date: 20080523
  Receipt Date: 20080513
  Transmission Date: 20081010
  Serious: Yes (Death)
  Sender: FDA-Public Use
  Company Number: SE-PFIZER INC-2007077612

PATIENT
  Sex: Male

DRUGS (8)
  1. LYRICA [Suspect]
     Indication: POLYNEUROPATHY
     Route: 048
  2. ENALAPRIL MALEATE [Suspect]
     Indication: HYPERTENSION
     Dosage: DAILY DOSE:20MG-FREQ:EVERYDAY
     Route: 048
  3. AMITRIPTYLINE HCL [Suspect]
     Indication: POLYNEUROPATHY
     Route: 048
  4. METFORMIN HCL [Suspect]
     Indication: DIABETES MELLITUS
     Dosage: DAILY DOSE:3GRAM-FREQ:EVERYDAY
     Route: 048
  5. INSULATARD [Concomitant]
  6. BENDROFLUMETHIAZIDE [Concomitant]
     Route: 048
  7. NICOTINAMIDE [Concomitant]
     Route: 048
  8. GLYBURIDE [Concomitant]
     Route: 048

REACTIONS (2)
  - LACTIC ACIDOSIS [None]
  - RENAL FAILURE [None]
